FAERS Safety Report 20781766 (Version 1)
Quarter: 2022Q2

REPORT INFORMATION
  Report Type: Spontaneous
  Country: JP (occurrence: JP)
  Receive Date: 20220504
  Receipt Date: 20220504
  Transmission Date: 20220721
  Serious: Yes (Hospitalization)
  Sender: FDA-Public Use
  Company Number: JP-ASTELLAS PHARMA EUROPE B.V.-2022JP006210

PATIENT
  Age: 7 Decade
  Sex: Male

DRUGS (1)
  1. HARNAL [Suspect]
     Active Substance: TAMSULOSIN HYDROCHLORIDE
     Indication: Product used for unknown indication
     Dosage: 0.1 MG, Q12H
     Route: 048

REACTIONS (2)
  - Mental disorder [Unknown]
  - Product use issue [Unknown]
